FAERS Safety Report 25033986 (Version 1)
Quarter: 2025Q1

REPORT INFORMATION
  Report Type: Report from Study
  Country: US (occurrence: US)
  Receive Date: 20250303
  Receipt Date: 20250303
  Transmission Date: 20250408
  Serious: Yes (Other)
  Sender: ABBVIE
  Company Number: US-ABBVIE-6151052

PATIENT
  Age: 54 Year
  Sex: Female

DRUGS (1)
  1. SKYRIZI [Suspect]
     Active Substance: RISANKIZUMAB-RZAA
     Indication: Psoriatic arthropathy
     Route: 058
     Dates: start: 20250124

REACTIONS (4)
  - Seizure [Recovered/Resolved]
  - Seizure [Recovering/Resolving]
  - Concussion [Unknown]
  - Jaw fracture [Unknown]

NARRATIVE: CASE EVENT DATE: 20250126
